FAERS Safety Report 21411261 (Version 1)
Quarter: 2022Q4

REPORT INFORMATION
  Report Type: Spontaneous
  Country: PT (occurrence: PT)
  Receive Date: 20221005
  Receipt Date: 20221005
  Transmission Date: 20230113
  Serious: Yes (Other)
  Sender: FDA-Public Use
  Company Number: PT-009507513-2209PRT006870

PATIENT
  Age: 75 Year
  Sex: Male

DRUGS (1)
  1. ZERBAXA [Suspect]
     Active Substance: CEFTOLOZANE SULFATE\TAZOBACTAM SODIUM
     Indication: Osteomyelitis
     Dosage: 500 MILLIGRAM, Q8H
     Dates: end: 20220930

REACTIONS (2)
  - Clostridial infection [Recovered/Resolved]
  - Product use in unapproved indication [Unknown]
